FAERS Safety Report 24526429 (Version 1)
Quarter: 2024Q4

REPORT INFORMATION
  Report Type: Spontaneous
  Country: US (occurrence: US)
  Receive Date: 20241021
  Receipt Date: 20241021
  Transmission Date: 20250115
  Serious: No
  Sender: BIOVITRUM
  Company Number: US-BIOVITRUM-2024-US-013339

PATIENT
  Age: 71 Year
  Sex: Female

DRUGS (1)
  1. VONJO [Suspect]
     Active Substance: PACRITINIB
     Indication: Myelofibrosis
     Dosage: 100 MG, TWICE DAILY
     Route: 048

REACTIONS (4)
  - Hypersomnia [Unknown]
  - Anaemia [Unknown]
  - Decreased appetite [Unknown]
  - Off label use [Not Recovered/Not Resolved]
